FAERS Safety Report 6186297-9 (Version None)
Quarter: 2009Q2

REPORT INFORMATION
  Report Type: 
  Country: None (occurrence: None)
  Receive Date: 20090511
  Receipt Date: 20090429
  Transmission Date: 20091009
  Serious: Yes (Hospitalization)
  Sender: FDA-Public Use
  Company Number: FR-JNJFOC-20090501944

PATIENT
  Age: 43 Year
  Sex: Male

DRUGS (8)
  1. TOPALGIC [Suspect]
     Route: 048
  2. TOPALGIC [Suspect]
     Route: 048
  3. TOPALGIC [Suspect]
     Indication: BACK PAIN
     Route: 048
  4. PARACETAMOL [Concomitant]
  5. LAMALINE [Concomitant]
     Indication: BACK PAIN
  6. ATTAPULGITE [Concomitant]
  7. CACIT D3 [Concomitant]
  8. MEBEVERINE [Concomitant]

REACTIONS (5)
  - ACCIDENTAL OVERDOSE [None]
  - BRADYPNOEA [None]
  - DISTURBANCE IN ATTENTION [None]
  - MIOSIS [None]
  - MYOCLONUS [None]
